FAERS Safety Report 11792536 (Version 1)
Quarter: 2015Q4

REPORT INFORMATION
  Report Type: Spontaneous
  Country: US (occurrence: US)
  Receive Date: 20151202
  Receipt Date: 20151202
  Transmission Date: 20160305
  Serious: No
  Sender: FDA-Public Use
  Company Number: PHEH2015US024872

PATIENT
  Sex: Male

DRUGS (1)
  1. TASIGNA [Suspect]
     Active Substance: NILOTINIB
     Indication: CHRONIC MYELOID LEUKAEMIA
     Route: 065

REACTIONS (22)
  - Hypoaesthesia [Unknown]
  - Diarrhoea [Unknown]
  - Pain in extremity [Unknown]
  - Dizziness [Unknown]
  - Rash [Unknown]
  - Fatigue [Unknown]
  - Constipation [Unknown]
  - Abdominal pain [Unknown]
  - Sinus disorder [Unknown]
  - Muscle spasms [Unknown]
  - Nausea [Unknown]
  - Skin discolouration [Unknown]
  - Gastrooesophageal reflux disease [Unknown]
  - Pyrexia [Unknown]
  - Paraesthesia [Unknown]
  - Myalgia [Unknown]
  - Arthralgia [Unknown]
  - Dry skin [Unknown]
  - Insomnia [Unknown]
  - Nasal congestion [Unknown]
  - Hair colour changes [Unknown]
  - Headache [Unknown]
